FAERS Safety Report 23612517 (Version 1)
Quarter: 2024Q1

REPORT INFORMATION
  Report Type: Spontaneous
  Country: FR (occurrence: FR)
  Receive Date: 20240308
  Receipt Date: 20240308
  Transmission Date: 20240410
  Serious: Yes (Death, Hospitalization, Other)
  Sender: FDA-Public Use
  Company Number: FR-ROCHE-3045686

PATIENT
  Age: 62 Year
  Sex: Male

DRUGS (9)
  1. ACETAMINOPHEN [Interacting]
     Active Substance: ACETAMINOPHEN
     Indication: Pyrexia
     Dosage: 4 GRAM, QD (MAX 4G PER DAY)
     Route: 048
     Dates: start: 20211114, end: 20211116
  2. VENETOCLAX [Interacting]
     Active Substance: VENETOCLAX
     Indication: Plasma cell myeloma
     Dosage: 400 MILLIGRAM, QD
     Route: 048
     Dates: start: 20210922, end: 20211116
  3. KETOCONAZOLE [Interacting]
     Active Substance: KETOCONAZOLE
     Indication: Product used for unknown indication
     Dosage: UNK UNK, QD
     Route: 065
     Dates: start: 20211020, end: 20211116
  4. VALACYCLOVIR HYDROCHLORIDE [Concomitant]
     Active Substance: VALACYCLOVIR HYDROCHLORIDE
     Indication: Product used for unknown indication
     Dosage: UNK
     Route: 065
  5. POMALIDOMIDE [Concomitant]
     Active Substance: POMALIDOMIDE
     Indication: Product used for unknown indication
     Dosage: UNK
     Route: 065
  6. DEXAMETHASONE [Concomitant]
     Active Substance: DEXAMETHASONE
     Indication: Product used for unknown indication
     Dosage: UNK
     Route: 065
  7. XARELTO [Concomitant]
     Active Substance: RIVAROXABAN
     Indication: Product used for unknown indication
     Dosage: UNK UNK, QD
     Route: 065
  8. BACTRIM [Concomitant]
     Active Substance: SULFAMETHOXAZOLE\TRIMETHOPRIM
     Indication: Product used for unknown indication
     Dosage: UNK, QW
     Route: 065
  9. SARCLISA [Concomitant]
     Active Substance: ISATUXIMAB\ISATUXIMAB-IRFC
     Indication: Product used for unknown indication
     Dosage: UNK
     Route: 065

REACTIONS (20)
  - Hepatitis fulminant [Fatal]
  - Cardio-respiratory arrest [Fatal]
  - Neutropenia [Unknown]
  - Thrombocytopenia [Unknown]
  - Cholestasis [Unknown]
  - Acute kidney injury [Unknown]
  - Haemoperitoneum [Unknown]
  - Febrile bone marrow aplasia [Unknown]
  - Hepatic cytolysis [Unknown]
  - Hepatic failure [Unknown]
  - Leukopenia [Unknown]
  - Bone pain [Unknown]
  - Haematoma [Unknown]
  - Puncture site haemorrhage [Unknown]
  - Adenovirus infection [Unknown]
  - Lung consolidation [Unknown]
  - Pleural effusion [Unknown]
  - Potentiating drug interaction [Unknown]
  - Diarrhoea [Unknown]
  - Pyrexia [Unknown]

NARRATIVE: CASE EVENT DATE: 20211116
